FAERS Safety Report 8402950-8 (Version None)
Quarter: 2012Q2

REPORT INFORMATION
  Report Type: 
  Country: None (occurrence: None)
  Receive Date: 20120601
  Receipt Date: 20120525
  Transmission Date: 20120825
  Serious: Yes (Hospitalization)
  Sender: FDA-Public Use
  Company Number: JP-VIIV HEALTHCARE LIMITED-B0802713A

PATIENT
  Sex: Male

DRUGS (6)
  1. EPZICOM [Suspect]
     Indication: HIV INFECTION
     Dosage: 1IUAX PER DAY
     Route: 048
     Dates: start: 20120407, end: 20120517
  2. TRUVADA [Suspect]
     Indication: HIV INFECTION
     Route: 048
     Dates: start: 20120304, end: 20120407
  3. ANTIPYRETICS [Suspect]
     Indication: HIV INFECTION
  4. ANALGESICS [Suspect]
     Indication: HIV INFECTION
  5. NSAIDS [Suspect]
     Indication: HIV INFECTION
     Route: 065
  6. ISENTRESS [Concomitant]
     Indication: HIV INFECTION
     Dosage: 800MG PER DAY
     Route: 048
     Dates: start: 20120304

REACTIONS (2)
  - BLOOD CREATININE INCREASED [None]
  - GLOMERULONEPHRITIS RAPIDLY PROGRESSIVE [None]
